FAERS Safety Report 16754165 (Version 1)
Quarter: 2019Q3

REPORT INFORMATION
  Report Type: Spontaneous
  Country: NL (occurrence: NL)
  Receive Date: 20190829
  Receipt Date: 20190829
  Transmission Date: 20191005
  Serious: Yes (Other)
  Sender: FDA-Public Use
  Company Number: NL-ACCORD-153069

PATIENT
  Age: 65 Year
  Sex: Male

DRUGS (1)
  1. INJEXATE [Suspect]
     Active Substance: METHOTREXATE SODIUM
     Indication: RHEUMATIC DISORDER
     Dosage: STRENGTH: 25 MG, DISPOSABLE SYRINGE 0.5ML
     Route: 051
     Dates: start: 20181017

REACTIONS (3)
  - Syringe issue [Unknown]
  - Needle issue [Unknown]
  - Injection site erythema [Unknown]
